FAERS Safety Report 8962972 (Version 1)
Quarter: 2012Q4

REPORT INFORMATION
  Report Type: 
  Country: CH (occurrence: CH)
  Receive Date: 20121214
  Receipt Date: 20121214
  Transmission Date: 20130627
  Serious: Yes (Other)
  Sender: FDA-Public Use
  Company Number: CH-JNJFOC-20121203829

PATIENT

DRUGS (5)
  1. DOXORUBICIN HYDROCHLORIDE(CAELYX) [Suspect]
     Indication: NEOPLASM
     Dosage: 5, 10, 20, 30, 40, 50, and 60 mg/m2 once every 4 weeks for a maximum of six cycles
     Route: 042
  2. ERBITUX [Suspect]
     Indication: NEOPLASM
     Route: 042
  3. GLUCOSE [Concomitant]
     Dosage: 250 mL of 5% glucose (500 mL for doses

}/-50 mg/m2) and infused the drug for 60 min
     Route: 042
  4. TROPISETRON [Concomitant]
     Indication: PROPHYLAXIS
     Dosage: on day 1
     Route: 048
  5. DEXAMETHASONE [Concomitant]
     Indication: PROPHYLAXIS
     Dosage: on days 1-5
     Route: 048

REACTIONS (2)
  - Urinary retention [Unknown]
  - Off label use [Unknown]
